FAERS Safety Report 9945331 (Version 1)
Quarter: 2014Q1

REPORT INFORMATION
  Report Type: Spontaneous
  Country: US (occurrence: US)
  Receive Date: 20140303
  Receipt Date: 20140303
  Transmission Date: 20141002
  Serious: No
  Sender: FDA-Public Use
  Company Number: US-ABBVIE-13P-163-1050696-00

PATIENT
  Age: 63 Year
  Sex: Female

DRUGS (5)
  1. HUMIRA [Suspect]
     Indication: PSORIASIS
     Route: 058
     Dates: start: 200910
  2. DEPAKOTE [Concomitant]
     Indication: CONVULSION
  3. RITALIN [Concomitant]
     Indication: ATTENTION DEFICIT/HYPERACTIVITY DISORDER
  4. RITALIN [Concomitant]
     Indication: ANXIETY
  5. ZOLOFT [Concomitant]
     Indication: ANXIETY

REACTIONS (1)
  - Neutrophil count decreased [Not Recovered/Not Resolved]
